FAERS Safety Report 25890475 (Version 2)
Quarter: 2025Q4

REPORT INFORMATION
  Report Type: Spontaneous
  Country: CA (occurrence: CA)
  Receive Date: 20251007
  Receipt Date: 20251020
  Transmission Date: 20260119
  Serious: Yes (Death)
  Sender: PFIZER
  Company Number: CA-PFIZER INC-202500196929

PATIENT
  Age: 84 Year
  Sex: Male

DRUGS (1)
  1. VYNDAMAX [Suspect]
     Active Substance: TAFAMIDIS
     Indication: Cardiac amyloidosis
     Dosage: 61 MG, 1X/DAY
     Route: 048
     Dates: start: 20210210

REACTIONS (1)
  - Death [Fatal]

NARRATIVE: CASE EVENT DATE: 20250629
